FAERS Safety Report 9331296 (Version 3)
Quarter: 2013Q2

REPORT INFORMATION
  Report Type: Spontaneous
  Country: US (occurrence: US)
  Receive Date: 20130605
  Receipt Date: 20130614
  Transmission Date: 20140414
  Serious: Yes (Hospitalization)
  Sender: FDA-Public Use
  Company Number: US-PFIZER INC-2013168848

PATIENT
  Sex: Male

DRUGS (2)
  1. PROTONIX [Suspect]
     Dosage: 40 MG, 1X/DAY
     Route: 048
  2. NORVASC [Suspect]
     Dosage: UNK

REACTIONS (1)
  - Abscess rupture [Unknown]
